FAERS Safety Report 8490878-7 (Version None)
Quarter: 2012Q2

REPORT INFORMATION
  Report Type: 
  Country: None (occurrence: None)
  Receive Date: 20120628
  Receipt Date: 20120628
  Transmission Date: 20120825
  Serious: Yes (Other)
  Sender: FDA-Public Use
  Company Number: None

PATIENT
  Age: 87 Year
  Sex: Female
  Weight: 49.8957 kg

DRUGS (1)
  1. ALPRAZOLAM [Suspect]
     Indication: DEPRESSION
     Dosage: 0.25 MG 1 EVERY 6 HRS
     Dates: start: 20120607, end: 20120615

REACTIONS (1)
  - DYSPEPSIA [None]
